FAERS Safety Report 14390739 (Version 1)
Quarter: 2018Q1

REPORT INFORMATION
  Report Type: Other
  Country: JP (occurrence: JP)
  Receive Date: 20180116
  Receipt Date: 20180116
  Transmission Date: 20180509
  Serious: Yes (Hospitalization)
  Sender: FDA-Public Use
  Company Number: JP-ORCHID HEALTHCARE-2040072

PATIENT
  Age: 56 Year
  Sex: Female
  Weight: 34 kg

DRUGS (1)
  1. OLANZAPINE. [Suspect]
     Active Substance: OLANZAPINE
     Indication: PSYCHIATRIC SYMPTOM

REACTIONS (9)
  - Decubitus ulcer [Recovered/Resolved]
  - White blood cell count increased [Recovered/Resolved]
  - Blood creatine phosphokinase increased [Recovered/Resolved]
  - Protein total decreased [Recovered/Resolved]
  - Blood albumin decreased [Recovered/Resolved]
  - Nervous system disorder [Recovered/Resolved]
  - Akinesia [Unknown]
  - C-reactive protein increased [Recovered/Resolved]
  - Parkinson^s disease [Unknown]
